FAERS Safety Report 4595039-X (Version None)
Quarter: 2005Q1

REPORT INFORMATION
  Report Type: 
  Country: None (occurrence: None)
  Receive Date: 20050223
  Receipt Date: 20050216
  Transmission Date: 20050727
  Serious: Yes (Disabling, Other)
  Sender: FDA-Public Use
  Company Number: 200510522BCC

PATIENT
  Age: 83 Year
  Sex: Male
  Weight: 88.4514 kg

DRUGS (6)
  1. ASPIRIN [Suspect]
     Indication: MYOCARDIAL INFARCTION
     Dosage: 325 MG, QD, ORAL
     Route: 048
     Dates: end: 20050101
  2. ASPIRIN [Suspect]
     Indication: PROPHYLAXIS
     Dosage: 325 MG, QD, ORAL
     Route: 048
     Dates: end: 20050101
  3. PLAVIX [Concomitant]
  4. AVANDIA [Concomitant]
  5. ZETIA [Concomitant]
  6. AVODART [Concomitant]

REACTIONS (3)
  - DEAFNESS BILATERAL [None]
  - DEAFNESS NEUROSENSORY [None]
  - TINNITUS [None]
